FAERS Safety Report 4634764-9 (Version None)
Quarter: 2005Q2

REPORT INFORMATION
  Report Type: 
  Country: None (occurrence: None)
  Receive Date: 20050412
  Receipt Date: 20050412
  Transmission Date: 20051028
  Serious: Yes (Life-Threatening, Hospitalization)
  Sender: FDA-Public Use
  Company Number: None

PATIENT
  Age: 71 Year
  Sex: Female
  Weight: 72.5755 kg

DRUGS (1)
  1. AVELOX [Suspect]
     Indication: BRONCHITIS
     Dosage: DAILY

REACTIONS (4)
  - ELECTROCARDIOGRAM QT PROLONGED [None]
  - NAUSEA [None]
  - TORSADE DE POINTES [None]
  - VOMITING [None]
